FAERS Safety Report 10130173 (Version 1)
Quarter: 2014Q2

REPORT INFORMATION
  Report Type: Spontaneous
  Country: US (occurrence: None)
  Receive Date: 20140425
  Receipt Date: 20140425
  Transmission Date: 20141212
  Serious: No
  Sender: FDA-Public Use
  Company Number: None

PATIENT
  Age: 70 Year
  Sex: Female
  Weight: 74.84 kg

DRUGS (2)
  1. EXJADE [Suspect]
     Indication: BLOOD IRON INCREASED
     Dosage: 3 TABLETS
     Route: 048
     Dates: start: 20140327, end: 20140418
  2. EXJADE [Suspect]
     Indication: TRANSFUSION
     Dosage: 3 TABLETS
     Route: 048
     Dates: start: 20140327, end: 20140418

REACTIONS (1)
  - Urticaria [None]
